FAERS Safety Report 10783016 (Version 1)
Quarter: 2015Q1

REPORT INFORMATION
  Report Type: Spontaneous
  Country: TR (occurrence: TR)
  Receive Date: 20150210
  Receipt Date: 20150210
  Transmission Date: 20150721
  Serious: Yes (Life-Threatening, Hospitalization, Other)
  Sender: FDA-Public Use
  Company Number: TR-TAKEDA-2015TUS001495

PATIENT
  Age: 6 Year
  Sex: Female

DRUGS (1)
  1. COLCHICINE. [Suspect]
     Active Substance: COLCHICINE
     Indication: PRODUCT USED FOR UNKNOWN INDICATION
     Dosage: UNK
     Route: 065

REACTIONS (7)
  - Multi-organ failure [Recovered/Resolved]
  - Toxicity to various agents [Unknown]
  - Dehydration [Recovered/Resolved]
  - Overdose [Unknown]
  - Encephalopathy [Unknown]
  - Acute respiratory distress syndrome [Unknown]
  - Bone marrow failure [Recovered/Resolved]
